FAERS Safety Report 17787996 (Version 2)
Quarter: 2020Q3

REPORT INFORMATION
  Report Type: Report from Study
  Country: None (occurrence: BR)
  Receive Date: 20200515
  Receipt Date: 20200812
  Transmission Date: 20201102
  Serious: Yes (Other)
  Sender: FDA-Public Use
  Company Number: BR-ABBVIE-20P-020-3404728-00

PATIENT
  Sex: Female

DRUGS (14)
  1. DEPAKENE [Suspect]
     Active Substance: VALPROIC ACID
     Indication: PRODUCT USED FOR UNKNOWN INDICATION
     Route: 048
  2. DIVALPROEX SODIUM. [Suspect]
     Active Substance: DIVALPROEX SODIUM
     Dosage: CHANGED TO TAB 1
     Route: 048
     Dates: end: 20200503
  3. DEPAKENE [Suspect]
     Active Substance: VALPROIC ACID
     Indication: PRODUCT USED FOR UNKNOWN INDICATION
     Route: 048
  4. DIVALPROEX SODIUM. [Suspect]
     Active Substance: DIVALPROEX SODIUM
     Dosage: IS CONSTANTLY AND GRADUALLY REPLACING DEPAKOTE (SEE NARRATIVE)
     Route: 048
  5. GLIFAGE [Concomitant]
     Active Substance: METFORMIN HYDROCHLORIDE
     Indication: BLOOD INSULIN INCREASED
     Dosage: MORNING/NIGHT; GLIFAGE XR (METFORMIN HYDROCHLORIDE) 500 MG; DAILY DOSE: 4 TABLETS
     Route: 048
  6. TOPIRAMATE. [Concomitant]
     Active Substance: TOPIRAMATE
     Indication: SEIZURE PROPHYLAXIS
     Dosage: 2 TABLETS IN THE MORNING,1 TABLET IN AFTERNOON AND 2 TABLETS AT NIGHT;DAILY DOSE:5 TABLETS
     Route: 048
  7. DIAMOX SEQUELS [Concomitant]
     Active Substance: ACETAZOLAMIDE
     Indication: DIURETIC THERAPY
     Dosage: MORNING/AFTERNOON; DAILY DOSE: 2 TABLETS
     Route: 048
  8. DEPAKOTE ER [Suspect]
     Active Substance: DIVALPROEX SODIUM
     Indication: SEIZURE
     Dosage: TAKEN IN THE MORNING;
     Route: 048
  9. DEPAKOTE ER [Suspect]
     Active Substance: DIVALPROEX SODIUM
     Dosage: STARTED TO BE REPLACED BY DIVALPROEX SODIUM (SEE NARRATIVE)
     Route: 048
  10. VITAMIN C [Concomitant]
     Active Substance: ASCORBIC ACID
     Indication: PRODUCT USED FOR UNKNOWN INDICATION
  11. DIVALPROEX SODIUM. [Suspect]
     Active Substance: DIVALPROEX SODIUM
     Indication: SEIZURE
     Route: 048
  12. DEPAKOTE ER [Suspect]
     Active Substance: DIVALPROEX SODIUM
     Dosage: CHANGED TO TAB 1
     Route: 048
  13. FRISIUM [Concomitant]
     Active Substance: CLOBAZAM
     Indication: SEIZURE
     Dosage: 2 TABLETS IN THE MORNING,1.5 TABLET IN AFTERNOON +1.5 TABLET AT NIGHT;DAILY DOSE:5 TABLETS
     Route: 048
  14. PROPOLIS [Concomitant]
     Active Substance: PROPOLIS WAX
     Indication: IMMUNODEFICIENCY
     Route: 048

REACTIONS (17)
  - Seizure [Recovering/Resolving]
  - Gingival erosion [Unknown]
  - Urinary incontinence [Unknown]
  - Weight increased [Unknown]
  - Upper limb fracture [Unknown]
  - Gingival disorder [Unknown]
  - Fall [Unknown]
  - Face injury [Unknown]
  - Lower limb fracture [Unknown]
  - Tooth development disorder [Unknown]
  - Product use issue [Unknown]
  - Off label use [Unknown]
  - Lower limb fracture [Unknown]
  - Inappropriate schedule of product administration [Unknown]
  - Brain oedema [Unknown]
  - Dental cyst [Unknown]
  - Head injury [Unknown]

NARRATIVE: CASE EVENT DATE: 20181224
